FAERS Safety Report 20097557 (Version 1)
Quarter: 2021Q4

REPORT INFORMATION
  Report Type: Spontaneous
  Country: ES (occurrence: ES)
  Receive Date: 20211122
  Receipt Date: 20211122
  Transmission Date: 20220303
  Serious: Yes (Other)
  Sender: FDA-Public Use
  Company Number: None

PATIENT
  Age: 89 Year
  Sex: Female

DRUGS (11)
  1. EXELON [Suspect]
     Active Substance: RIVASTIGMINE TARTRATE
     Indication: Dementia Alzheimer^s type
     Dosage: UNK (9.5 MG C/24 H) (STRENGTH: 9,5 MG/24 H)
     Route: 065
     Dates: start: 20210714
  2. ZOLPIDEM TARTRATE [Concomitant]
     Active Substance: ZOLPIDEM TARTRATE
     Indication: Insomnia
     Dosage: UNK (10.0 MG C/24 H NOC)
     Route: 048
     Dates: start: 20120730
  3. LEUCOVORIN CALCIUM [Concomitant]
     Active Substance: LEUCOVORIN CALCIUM
     Indication: Polymyalgia rheumatica
     Dosage: UNK (1.0 COMP C/7 DIAS) (10 COMPRIMIDOS)
     Route: 048
     Dates: start: 20160204
  4. METHOTREXATE (METHOTREXATE SODIUM) [Concomitant]
     Active Substance: METHOTREXATE SODIUM
     Indication: Polymyalgia rheumatica
     Dosage: UNK UNK, QW (12.5 MG C/7 DIAS) (METOTREXATO SEMANAL WYETH 2,5 MG COMPRIMIDOS, 24 COMPRIMIDOS)
     Route: 048
     Dates: start: 20190710
  5. PREDNISONE [Concomitant]
     Active Substance: PREDNISONE
     Indication: Polymyalgia rheumatica
     Dosage: UNK (5.0 MG DE)
     Route: 048
     Dates: start: 20210304
  6. QUETIAPINE FUMARATE [Concomitant]
     Active Substance: QUETIAPINE FUMARATE
     Indication: Hallucination
     Dosage: UNK (50.0 MG COCE) (60 COMPRIMIDOS)
     Route: 048
     Dates: start: 20201104
  7. IBUPROFENO STADA [Concomitant]
     Indication: Back pain
     Dosage: UNK (30 COMPRIMIDOS) (400.0 MG C/8 HORAS)
     Route: 048
     Dates: start: 20180315
  8. MONUROL [Concomitant]
     Active Substance: FOSFOMYCIN TROMETHAMINE
     Indication: Urinary tract infection
     Dosage: UNK (ONGOING) (3000.0 MG C/24 H) (2 SOBRES)
     Route: 048
     Dates: start: 20211013, end: 20211014
  9. LEXXEMA [Concomitant]
     Indication: Hyperhidrosis
     Dosage: UNK (1.0 APLIC C/24 H) (SOLUCION CUTANEA, 1 FRASCO DE 50 ML)
     Route: 061
     Dates: start: 20200206
  10. PAROXETINE HYDROCHLORIDE [Concomitant]
     Active Substance: PAROXETINE HYDROCHLORIDE
     Indication: Product used for unknown indication
     Dosage: (20.0 MG DE) ( 56 COMPRIMIDOS)
     Route: 048
     Dates: start: 20201107
  11. OMEPRAZOLE [Concomitant]
     Active Substance: OMEPRAZOLE
     Indication: Polymyalgia rheumatica
     Dosage: UNK (20.0 MG C/12 H) ( 56 CAPSULAS)
     Route: 048
     Dates: start: 20150423

REACTIONS (1)
  - Arrhythmia [Unknown]

NARRATIVE: CASE EVENT DATE: 20211026
